FAERS Safety Report 9332458 (Version 2)
Quarter: 2013Q3

REPORT INFORMATION
  Report Type: Spontaneous
  Country: FR (occurrence: FR)
  Receive Date: 20130606
  Receipt Date: 20130701
  Transmission Date: 20140515
  Serious: Yes (Disabling)
  Sender: FDA-Public Use
  Company Number: FR-JNJFOC-20130520059

PATIENT
  Age: 78 Year
  Sex: Female

DRUGS (5)
  1. HALDOL [Suspect]
     Indication: AGITATION
     Dosage: 2 AMPULES INJECTED IN JUN-2012
     Route: 030
     Dates: start: 201206, end: 201206
  2. RISPERDAL [Suspect]
     Indication: PRODUCT USED FOR UNKNOWN INDICATION
     Route: 048
     Dates: start: 201206, end: 201212
  3. LOXAPAC [Suspect]
     Indication: AGITATION
     Route: 030
     Dates: start: 201206, end: 201206
  4. DEPAMIDE [Suspect]
     Indication: PRODUCT USED FOR UNKNOWN INDICATION
     Route: 048
  5. IMOVANE [Concomitant]
     Dosage: 1 TABLET ON THE EVENING.
     Route: 048

REACTIONS (2)
  - Parkinsonism [Not Recovered/Not Resolved]
  - Parkinsonism [Not Recovered/Not Resolved]
